FAERS Safety Report 20308046 (Version 1)
Quarter: 2022Q1

REPORT INFORMATION
  Report Type: Spontaneous
  Country: US (occurrence: US)
  Receive Date: 20220107
  Receipt Date: 20220107
  Transmission Date: 20220423
  Serious: No
  Sender: FDA-Public Use
  Company Number: US-ALLERGAN-2142342US

PATIENT

DRUGS (1)
  1. ATOGEPANT [Suspect]
     Active Substance: ATOGEPANT
     Indication: Migraine
     Dosage: UNK
     Dates: start: 20211122

REACTIONS (2)
  - Product dose omission issue [Unknown]
  - Migraine [Unknown]
